FAERS Safety Report 18104560 (Version 1)
Quarter: 2020Q3

REPORT INFORMATION
  Report Type: Spontaneous
  Country: US (occurrence: US)
  Receive Date: 20200803
  Receipt Date: 20200803
  Transmission Date: 20201103
  Serious: Yes (Other)
  Sender: FDA-Public Use
  Company Number: US-JNJFOC-20200736170

PATIENT
  Age: 61 Year
  Sex: Male
  Weight: 77.18 kg

DRUGS (2)
  1. RIVAROXABAN [Suspect]
     Active Substance: RIVAROXABAN
     Dosage: SERIAL NUMBER: 100013680378?PRESCRIPTION NUMBER:1913043
     Route: 048
     Dates: start: 20200722
  2. RIVAROXABAN [Suspect]
     Active Substance: RIVAROXABAN
     Indication: DEEP VEIN THROMBOSIS
     Route: 048
     Dates: start: 2018

REACTIONS (5)
  - Vascular cauterisation [Unknown]
  - Off label use [Unknown]
  - Blood urine present [Not Recovered/Not Resolved]
  - Renal stone removal [Unknown]
  - Inappropriate schedule of product administration [Unknown]

NARRATIVE: CASE EVENT DATE: 20200713
